FAERS Safety Report 14353584 (Version 1)
Quarter: 2018Q1

REPORT INFORMATION
  Report Type: Spontaneous
  Country: US (occurrence: US)
  Receive Date: 20180105
  Receipt Date: 20180105
  Transmission Date: 20180509
  Serious: No
  Sender: FDA-Public Use
  Company Number: US-ASTRAZENECA-2017SF04372

PATIENT
  Sex: Female
  Weight: 58.5 kg

DRUGS (3)
  1. FULVESTRANT. [Suspect]
     Active Substance: FULVESTRANT
     Indication: OVARIAN CANCER
     Dosage: 500 MG SHOT GIVEN AT 2 WEEKS THEN 2 WEEKS
     Route: 030
  2. FULVESTRANT. [Suspect]
     Active Substance: FULVESTRANT
     Indication: OVARIAN CANCER
     Route: 030
     Dates: start: 201711
  3. ARIMIDEX [Suspect]
     Active Substance: ANASTROZOLE
     Route: 048

REACTIONS (5)
  - Scar [Unknown]
  - Nausea [Recovered/Resolved]
  - Product use in unapproved indication [Unknown]
  - Constipation [Unknown]
  - Off label use [Unknown]
